FAERS Safety Report 10869295 (Version 2)
Quarter: 2015Q2

REPORT INFORMATION
  Report Type: Spontaneous
  Country: DE (occurrence: DE)
  Receive Date: 20150226
  Receipt Date: 20150402
  Transmission Date: 20150821
  Serious: Yes (Hospitalization)
  Sender: FDA-Public Use
  Company Number: DE-ROCHE-1516346

PATIENT
  Age: 31 Year
  Sex: Female
  Weight: 75 kg

DRUGS (5)
  1. THYROXIN [Concomitant]
     Active Substance: LEVOTHYROXINE
     Route: 065
     Dates: start: 201208
  2. XOLAIR [Suspect]
     Active Substance: OMALIZUMAB
     Indication: CHRONIC SPONTANEOUS URTICARIA
     Route: 030
     Dates: start: 20140401
  3. XOLAIR [Suspect]
     Active Substance: OMALIZUMAB
     Indication: SYSTEMIC MASTOCYTOSIS
     Route: 030
     Dates: start: 20141215
  4. XOLAIR [Suspect]
     Active Substance: OMALIZUMAB
     Route: 030
     Dates: start: 20141226
  5. AERIUS [Concomitant]
     Active Substance: DESLORATADINE
     Route: 065
     Dates: start: 201208

REACTIONS (8)
  - Angioedema [Recovered/Resolved]
  - Incorrect route of drug administration [Unknown]
  - Product use issue [Unknown]
  - Incorrect product storage [Unknown]
  - Drug ineffective [Unknown]
  - Blood immunoglobulin E decreased [Unknown]
  - Drug level decreased [Unknown]
  - Urticaria [Recovered/Resolved]

NARRATIVE: CASE EVENT DATE: 20141223
